FAERS Safety Report 6245147-2 (Version None)
Quarter: 2009Q2

REPORT INFORMATION
  Report Type: 
  Country: None (occurrence: None)
  Receive Date: 20090619
  Receipt Date: 20090512
  Transmission Date: 20091009
  Serious: No
  Sender: FDA-Public Use
  Company Number: ALL1-2009-01346

PATIENT
  Age: 45 Year
  Sex: Female
  Weight: 61.2 kg

DRUGS (1)
  1. VYVANSE [Suspect]
     Indication: ATTENTION DEFICIT/HYPERACTIVITY DISORDER
     Dosage: 20 MG, 3X/DAY; TID, ORAL
     Route: 048

REACTIONS (2)
  - DRUG PRESCRIBING ERROR [None]
  - DRUG SCREEN NEGATIVE [None]
